FAERS Safety Report 5742202-8 (Version None)
Quarter: 2008Q2

REPORT INFORMATION
  Report Type: 
  Country: None (occurrence: None)
  Receive Date: 20080515
  Receipt Date: 20080505
  Transmission Date: 20081010
  Serious: Yes (Hospitalization, Other)
  Sender: FDA-Public Use
  Company Number: IMP_03637_2008

PATIENT
  Age: 32 Year
  Sex: Female

DRUGS (1)
  1. MINOCYCLINE HCL        (NOT SPECIFIED) [Suspect]
     Indication: ACNE
     Dosage: DF 75 MG
     Dates: start: 20080301

REACTIONS (4)
  - ALOPECIA [None]
  - HYPERSENSITIVITY [None]
  - SKIN EXFOLIATION [None]
  - SWELLING [None]
